FAERS Safety Report 12734442 (Version 1)
Quarter: 2016Q3

REPORT INFORMATION
  Report Type: Spontaneous
  Country: US (occurrence: US)
  Receive Date: 20160912
  Receipt Date: 20160912
  Transmission Date: 20161109
  Serious: Yes (Hospitalization, Other)
  Sender: FDA-Public Use
  Company Number: US-AMGEN-USASP2016120380

PATIENT
  Age: 53 Year
  Sex: Female

DRUGS (1)
  1. ENBREL [Suspect]
     Active Substance: ETANERCEPT
     Indication: PRODUCT USED FOR UNKNOWN INDICATION
     Dosage: UNK
     Route: 065

REACTIONS (6)
  - Spinal operation [Unknown]
  - Cellulitis [Unknown]
  - Pain in extremity [Unknown]
  - Transient ischaemic attack [Unknown]
  - Herpes zoster [Unknown]
  - Nerve injury [Unknown]

NARRATIVE: CASE EVENT DATE: 2016
